FAERS Safety Report 11910789 (Version 1)
Quarter: 2016Q1

REPORT INFORMATION
  Report Type: Spontaneous
  Country: US (occurrence: US)
  Receive Date: 20160112
  Receipt Date: 20160112
  Transmission Date: 20160526
  Serious: No
  Sender: FDA-Public Use
  Company Number: US-GLAXOSMITHKLINE-US2016003460

PATIENT
  Age: 39 Year
  Sex: Female

DRUGS (1)
  1. NICORETTE CINNAMON SURGE [Suspect]
     Active Substance: NICOTINE
     Indication: SMOKING CESSATION THERAPY
     Dosage: 4 MG, UNK
     Dates: start: 20151215, end: 20160108

REACTIONS (2)
  - Nicotine dependence [Not Recovered/Not Resolved]
  - Condition aggravated [Not Recovered/Not Resolved]
